FAERS Safety Report 7738696-9 (Version None)
Quarter: 2011Q3

REPORT INFORMATION
  Report Type: 
  Country: None (occurrence: None)
  Receive Date: 20110908
  Receipt Date: 20110906
  Transmission Date: 20111222
  Serious: No
  Sender: FDA-Public Use
  Company Number: US-PFIZER INC-2011185243

PATIENT
  Sex: Female
  Weight: 57.143 kg

DRUGS (4)
  1. TENORMIN [Concomitant]
     Indication: HYPERTENSION
     Dosage: 50 MG, DAILY
  2. ADVIL PM [Suspect]
     Indication: ARTHRALGIA
     Dosage: 200/38 MG, 2X/DAY
     Dates: start: 20110726
  3. SYNTHROID [Concomitant]
     Indication: THYROID DISORDER
     Dosage: 0.05 MG, DAILY
  4. ADVIL PM [Suspect]
     Indication: SLEEP DISORDER

REACTIONS (4)
  - RESTLESSNESS [None]
  - INSOMNIA [None]
  - DRUG INEFFECTIVE [None]
  - AGITATION [None]
